FAERS Safety Report 22155219 (Version 1)
Quarter: 2023Q1

REPORT INFORMATION
  Report Type: Spontaneous
  Country: US (occurrence: None)
  Receive Date: 20230329
  Receipt Date: 20230329
  Transmission Date: 20230418
  Serious: No
  Sender: FDA-Public Use
  Company Number: None

PATIENT
  Age: 54 Year
  Sex: Female
  Weight: 84 kg

DRUGS (13)
  1. LENVIMA [Suspect]
     Active Substance: LENVATINIB
     Indication: Endometrial cancer
     Dosage: FREQUENCY : DAILY;?
     Route: 048
     Dates: start: 20210901, end: 20221126
  2. KEYTRUDA [Suspect]
     Active Substance: PEMBROLIZUMAB
  3. CLONIDINE [Concomitant]
     Active Substance: CLONIDINE
  4. ATORVASTATIN [Concomitant]
     Active Substance: ATORVASTATIN
  5. LISINOPRIL [Concomitant]
     Active Substance: LISINOPRIL
  6. AMLODIPINE [Concomitant]
     Active Substance: AMLODIPINE BESYLATE
  7. OMEPRAZOLE [Concomitant]
     Active Substance: OMEPRAZOLE
  8. hydrochlorathizide [Concomitant]
  9. ATENOLOL [Concomitant]
     Active Substance: ATENOLOL
  10. poassium chloride [Concomitant]
  11. XGEVA [Concomitant]
     Active Substance: DENOSUMAB
  12. KEYTRUDA [Concomitant]
     Active Substance: PEMBROLIZUMAB
  13. LEVOTHYROXINE [Concomitant]
     Active Substance: LEVOTHYROXINE

REACTIONS (2)
  - Therapy interrupted [None]
  - Renal impairment [None]

NARRATIVE: CASE EVENT DATE: 20221126
